FAERS Safety Report 4701389-6 (Version None)
Quarter: 2005Q2

REPORT INFORMATION
  Report Type: 
  Country: None (occurrence: None)
  Receive Date: 20050627
  Receipt Date: 20050617
  Transmission Date: 20051028
  Serious: Yes (Hospitalization)
  Sender: FDA-Public Use
  Company Number: 2005-06-1088

PATIENT
  Age: 87 Year
  Sex: Female

DRUGS (3)
  1. CLARINEX [Suspect]
     Indication: PRURITUS
     Dosage: 5 MG QD ORAL
     Route: 048
     Dates: start: 20050526
  2. VIBRAMYCIN [Concomitant]
  3. ASPEGIC 325 [Concomitant]

REACTIONS (4)
  - FIXED ERUPTION [None]
  - ORAL DISCOMFORT [None]
  - PARAESTHESIA [None]
  - PRURITUS [None]
